FAERS Safety Report 17472561 (Version 1)
Quarter: 2020Q1

REPORT INFORMATION
  Report Type: Spontaneous
  Country: US (occurrence: US)
  Receive Date: 20200228
  Receipt Date: 20200228
  Transmission Date: 20200409
  Serious: No
  Sender: FDA-Public Use
  Company Number: US-BAYER-2020-035513

PATIENT
  Sex: Female

DRUGS (3)
  1. CHOLESTEROL MANAGER [Concomitant]
     Indication: BLOOD CHOLESTEROL ABNORMAL
  2. CLARITIN [Suspect]
     Active Substance: LORATADINE
     Indication: BONE PAIN
     Dosage: 1 DF, OM
     Route: 048
     Dates: start: 2019
  3. CLARITIN [Suspect]
     Active Substance: LORATADINE
     Indication: BONE PAIN
     Dosage: 1 DF, OM
     Route: 048
     Dates: start: 20200210

REACTIONS (2)
  - Drug effective for unapproved indication [Unknown]
  - Off label use [Unknown]
